FAERS Safety Report 23846048 (Version 14)
Quarter: 2025Q4

REPORT INFORMATION
  Report Type: Report from Study
  Country: CA (occurrence: CA)
  Receive Date: 20240512
  Receipt Date: 20251031
  Transmission Date: 20260117
  Serious: Yes (Other)
  Sender: JOHNSON AND JOHNSON
  Company Number: CA-JNJFOC-20240515463

PATIENT
  Age: 58 Year
  Sex: Female
  Weight: 77 kg

DRUGS (13)
  1. STELARA [Suspect]
     Active Substance: USTEKINUMAB
     Indication: Crohn^s disease
     Route: 058
     Dates: start: 20240111
  2. STELARA [Suspect]
     Active Substance: USTEKINUMAB
     Route: 058
     Dates: start: 20240111
  3. STELARA [Suspect]
     Active Substance: USTEKINUMAB
     Route: 058
     Dates: start: 20240111
  4. STELARA [Suspect]
     Active Substance: USTEKINUMAB
     Route: 058
     Dates: start: 20240111
  5. STELARA [Suspect]
     Active Substance: USTEKINUMAB
     Route: 058
  6. STELARA [Suspect]
     Active Substance: USTEKINUMAB
     Dosage: LAST DOSE RECEIVED ON 27-JUN-2024
     Route: 058
  7. STELARA [Suspect]
     Active Substance: USTEKINUMAB
     Route: 058
  8. STELARA [Suspect]
     Active Substance: USTEKINUMAB
     Route: 058
  9. STELARA [Suspect]
     Active Substance: USTEKINUMAB
     Route: 058
  10. STELARA [Suspect]
     Active Substance: USTEKINUMAB
     Route: 058
  11. STELARA [Suspect]
     Active Substance: USTEKINUMAB
     Route: 058
  12. STELARA [Suspect]
     Active Substance: USTEKINUMAB
     Indication: Crohn^s disease
     Dosage: IV REINDUCTION
     Route: 040
     Dates: start: 20240111
  13. MESALAMINE [Concomitant]
     Active Substance: MESALAMINE
     Indication: Product used for unknown indication

REACTIONS (7)
  - Salmonellosis [Recovered/Resolved]
  - Lung neoplasm [Recovered/Resolved]
  - Crohn^s disease [Not Recovered/Not Resolved]
  - Rash [Recovered/Resolved]
  - Product label issue [Unknown]
  - Drug ineffective [Unknown]
  - Off label use [Unknown]

NARRATIVE: CASE EVENT DATE: 20240521
